FAERS Safety Report 10795008 (Version 1)
Quarter: 2015Q1

REPORT INFORMATION
  Report Type: Spontaneous
  Country: US (occurrence: US)
  Receive Date: 20150214
  Receipt Date: 20150214
  Transmission Date: 20150721
  Serious: No
  Sender: FDA-Public Use
  Company Number: US-GLAXOSMITHKLINE-A1067646A

PATIENT

DRUGS (4)
  1. WATER PILL [Concomitant]
     Active Substance: UNSPECIFIED INGREDIENT
  2. ALLI [Suspect]
     Active Substance: ORLISTAT
     Indication: WEIGHT DECREASED
  3. ZANTAC [Concomitant]
     Active Substance: RANITIDINE HYDROCHLORIDE
  4. NORCO [Concomitant]
     Active Substance: ACETAMINOPHEN\HYDROCODONE BITARTRATE

REACTIONS (5)
  - Faeces pale [Unknown]
  - Abdominal pain upper [Unknown]
  - Drug interaction [Unknown]
  - Treatment noncompliance [Unknown]
  - Weight increased [Not Recovered/Not Resolved]
